FAERS Safety Report 25176130 (Version 1)
Quarter: 2025Q2

REPORT INFORMATION
  Report Type: Report from Study
  Country: US (occurrence: US)
  Receive Date: 20250409
  Receipt Date: 20250409
  Transmission Date: 20250717
  Serious: No
  Sender: ACADIA PHARMACEUTICALS
  Company Number: US-ACADIA PHARMACEUTICALS INC.-ACA-2025-PIM-003839

PATIENT
  Age: 85 Year
  Sex: Male

DRUGS (25)
  1. NUPLAZID [Suspect]
     Active Substance: PIMAVANSERIN TARTRATE
     Indication: Parkinson^s disease
     Dosage: 34 MILLIGRAM, QD
     Route: 048
     Dates: start: 20250213
  2. ACETAMINOPHEN\CODEINE PHOSPHATE [Concomitant]
     Active Substance: ACETAMINOPHEN\CODEINE PHOSPHATE
  3. AMOXICILLIN [Concomitant]
     Active Substance: AMOXICILLIN
  4. AREXVY [Concomitant]
     Active Substance: RECOMBINANT RESPIRATORY SYNCYTIAL VIRUS PRE-FUSION F PROTEIN ANTIGEN
  5. BENZONATATE [Concomitant]
     Active Substance: BENZONATATE
  6. CARBIDOPA\LEVODOPA [Concomitant]
     Active Substance: CARBIDOPA\LEVODOPA
  7. CLOTRIMAZOLE [Concomitant]
     Active Substance: CLOTRIMAZOLE
  8. BETAMETHASONE [Concomitant]
     Active Substance: BETAMETHASONE
  9. DONEPEZIL [Concomitant]
     Active Substance: DONEPEZIL
  10. DOXYCYCLINE HYCLATE [Concomitant]
     Active Substance: DOXYCYCLINE HYCLATE
  11. DULOXETINE [Concomitant]
     Active Substance: DULOXETINE
  12. FLUAD QUADRIVALENT 2020/2021 [Concomitant]
     Active Substance: INFLUENZA A VIRUS A/HONG KONG/2671/2019 IVR-208 (H3N2) ANTIGEN (FORMALDEHYDE INACTIVATED)\INFLUENZA
  13. LEVOTHYROXINE [Concomitant]
     Active Substance: LEVOTHYROXINE
  14. LIDOCAINE [Concomitant]
     Active Substance: LIDOCAINE
  15. MEMANTINE [Concomitant]
     Active Substance: MEMANTINE
  16. METFORMIN [Concomitant]
     Active Substance: METFORMIN HYDROCHLORIDE
  17. METOPROLOL [Concomitant]
     Active Substance: METOPROLOL
  18. MIRABEGRON [Concomitant]
     Active Substance: MIRABEGRON
  19. MIRABEGRON [Concomitant]
     Active Substance: MIRABEGRON
  20. PANTOPRAZOLE [Concomitant]
     Active Substance: PANTOPRAZOLE
  21. PAXLOVID [Concomitant]
     Active Substance: NIRMATRELVIR\RITONAVIR
  22. PENICILLIN [Concomitant]
     Active Substance: PENICILLIN
  23. QUETIAPINE [Concomitant]
     Active Substance: QUETIAPINE
  24. XIIDRA [Concomitant]
     Active Substance: LIFITEGRAST
  25. SULFAMETHAZINE [Concomitant]
     Active Substance: SULFAMETHAZINE

REACTIONS (1)
  - Dyspepsia [Recovered/Resolved]

NARRATIVE: CASE EVENT DATE: 20250401
